FAERS Safety Report 7487549-2 (Version None)
Quarter: 2011Q2

REPORT INFORMATION
  Report Type: 
  Country: None (occurrence: None)
  Receive Date: 20110518
  Receipt Date: 20110512
  Transmission Date: 20111010
  Serious: Yes (Hospitalization)
  Sender: FDA-Public Use
  Company Number: US-BRISTOL-MYERS SQUIBB COMPANY-15373533

PATIENT
  Age: 65 Year
  Sex: Female
  Weight: 72 kg

DRUGS (15)
  1. CARDIZEM CD [Concomitant]
     Indication: BLOOD PRESSURE
  2. AMITRIPTYLINE HCL [Concomitant]
     Indication: DEPRESSION
  3. LISINOPRIL [Concomitant]
     Indication: BLOOD PRESSURE
  4. ROPINIROLE [Concomitant]
     Indication: POLLAKIURIA
  5. CITALOPRAM [Concomitant]
     Indication: DEPRESSION
  6. CELEXA [Concomitant]
     Dates: start: 20090101
  7. PREVPAC [Concomitant]
  8. PACLITAXEL [Suspect]
     Indication: NON-SMALL CELL LUNG CANCER
     Dosage: INTERRUPTED ON 21JUN10,RESTARTED ON 20JUL10
     Route: 042
     Dates: start: 20100621
  9. BEVACIZUMAB [Suspect]
     Indication: NON-SMALL CELL LUNG CANCER
     Dosage: RESTARTED ON 20JUL10
     Route: 042
     Dates: start: 20100621
  10. METFORMIN HCL [Concomitant]
     Indication: DIABETES MELLITUS
  11. ASPIRIN [Concomitant]
     Indication: PROPHYLAXIS
  12. LOVASTATIN [Concomitant]
     Indication: BLOOD CHOLESTEROL
  13. STALEVO 100 [Concomitant]
     Indication: PARKINSON'S DISEASE
  14. CARBOPLATIN [Suspect]
     Indication: NON-SMALL CELL LUNG CANCER
     Dosage: 1DF=AUC6 INTERRUPTED ON 21JUN10,RESTARTED ON 20JUL10
     Route: 042
     Dates: start: 20100621
  15. DECADRON [Concomitant]

REACTIONS (3)
  - NAUSEA [None]
  - DEHYDRATION [None]
  - VOMITING [None]
